FAERS Safety Report 9692933 (Version 1)
Quarter: 2013Q4

REPORT INFORMATION
  Report Type: Spontaneous
  Country: US (occurrence: US)
  Receive Date: 20131118
  Receipt Date: 20131118
  Transmission Date: 20140711
  Serious: No
  Sender: FDA-Public Use
  Company Number: US-GLAXOSMITHKLINE-A1014600A

PATIENT
  Age: 70 Year
  Sex: Male

DRUGS (7)
  1. COREG CR [Suspect]
     Indication: HYPERTENSION
     Dosage: 20MG PER DAY
     Route: 048
     Dates: start: 20130228
  2. LISINOPRIL [Concomitant]
  3. FLECAINIDE [Concomitant]
  4. ASPIRIN [Concomitant]
  5. PRAVASTATIN [Concomitant]
  6. COMBIGAN [Concomitant]
  7. LATANOPROST [Concomitant]

REACTIONS (1)
  - Blood pressure increased [Not Recovered/Not Resolved]
